FAERS Safety Report 13059010 (Version 3)
Quarter: 2017Q4

REPORT INFORMATION
  Report Type: Spontaneous
  Country: CA (occurrence: CA)
  Receive Date: 20161223
  Receipt Date: 20171211
  Transmission Date: 20180320
  Serious: Yes (Other)
  Sender: FDA-Public Use
  Company Number: CA-CELLTRION HEALTHCARE HUNGARY KFT-2015CA012681

PATIENT

DRUGS (8)
  1. INFLECTRA [Suspect]
     Active Substance: INFLIXIMAB-DYYB
     Dosage: EVERY 0,2,6 WEEKS, THEN EVERY 7 WEEKS/8 WEEKS
     Route: 042
     Dates: start: 20150413
  2. CLARITHROMYCIN. [Concomitant]
     Active Substance: CLARITHROMYCIN
     Dosage: 500 MG, BID
     Route: 065
  3. INFLECTRA [Suspect]
     Active Substance: INFLIXIMAB-DYYB
     Dosage: 500 MG, THEN EVERY 6 WEEKS/8 WEEKS
     Route: 042
     Dates: start: 20171130
  4. METHOTREXATE. [Concomitant]
     Active Substance: METHOTREXATE
     Dosage: UNK
     Route: 065
     Dates: start: 20150201
  5. INFLECTRA [Suspect]
     Active Substance: INFLIXIMAB-DYYB
     Indication: PSORIATIC ARTHROPATHY
     Dosage: EVERY 0,2,6 WEEKS, THEN EVERY 7 WEEKS/8 WEEKS
     Route: 042
     Dates: start: 20150413
  6. INFLECTRA [Suspect]
     Active Substance: INFLIXIMAB-DYYB
     Dosage: EVERY 0,2,6 WEEKS, THEN EVERY 7 WEEKS/8 WEEKS
     Route: 042
     Dates: start: 20150413
  7. ARAVA [Concomitant]
     Active Substance: LEFLUNOMIDE
     Dosage: 20 MG, DAILY
  8. ARAVA [Concomitant]
     Active Substance: LEFLUNOMIDE
     Dosage: 20 MG, FREQ: 1 DAY; INTERVAL: 1
     Route: 065

REACTIONS (6)
  - Incorrect drug administration duration [Unknown]
  - Heart rate decreased [Unknown]
  - Condition aggravated [Unknown]
  - Pharyngitis [Recovered/Resolved]
  - Blood pressure increased [Unknown]
  - Weight fluctuation [Unknown]

NARRATIVE: CASE EVENT DATE: 20150428
